APPROVED DRUG PRODUCT: ARTESUNATE
Active Ingredient: ARTESUNATE
Strength: 110MG/VIAL
Dosage Form/Route: POWDER;INTRAVENOUS
Application: N213036 | Product #001
Applicant: AMIVAS INC
Approved: May 26, 2020 | RLD: Yes | RS: Yes | Type: RX

PATENTS:
Patent 12121506 | Expires: Feb 16, 2044

EXCLUSIVITY:
Code: ODE-290 | Date: May 26, 2027